FAERS Safety Report 7009644-4 (Version None)
Quarter: 2010Q3

REPORT INFORMATION
  Report Type: 
  Country: None (occurrence: None)
  Receive Date: 20100903
  Receipt Date: 20100709
  Transmission Date: 20110219
  Serious: No
  Sender: FDA-Public Use
  Company Number: 163-22393-10060560

PATIENT
  Age: 76 Year
  Sex: Female

DRUGS (7)
  1. ISTODAX [Suspect]
     Indication: MYCOSIS FUNGOIDES
     Dosage: 28 MG WEEKLY PIGGY BACK
     Dates: start: 20100504
  2. CYPROHEPATIDINE (CYPROHEPATIDINE) [Concomitant]
  3. HYDROCHLOROTHIAZIDE [Concomitant]
  4. ATENOLOL [Concomitant]
  5. CARVEDILOL [Concomitant]
  6. LEXAPRO [Concomitant]
  7. LEVOTHYROXINE SODIUM [Concomitant]

REACTIONS (1)
  - PAROTID GLAND ENLARGEMENT [None]
